FAERS Safety Report 4805323-X (Version None)
Quarter: 2005Q4

REPORT INFORMATION
  Report Type: 
  Country: None (occurrence: None)
  Receive Date: 20051020
  Receipt Date: 20040623
  Transmission Date: 20060501
  Serious: Yes (Hospitalization, Other)
  Sender: FDA-Public Use
  Company Number: IT-MERCK-0406ITA00034

PATIENT
  Age: 76 Year
  Sex: Female

DRUGS (2)
  1. VIOXX [Suspect]
     Indication: OSTEOARTHRITIS
     Route: 048
     Dates: start: 20040301, end: 20040320
  2. CARBAMAZEPINE [Concomitant]
     Indication: MENINGIOMA
     Route: 048

REACTIONS (3)
  - GASTRITIS EROSIVE [None]
  - GASTRITIS HAEMORRHAGIC [None]
  - MELAENA [None]
